FAERS Safety Report 18682270 (Version 1)
Quarter: 2020Q4

REPORT INFORMATION
  Report Type: Spontaneous
  Country: US (occurrence: US)
  Receive Date: 20201230
  Receipt Date: 20201230
  Transmission Date: 20210114
  Serious: No
  Sender: FDA-Public Use
  Company Number: US-TOLMAR, INC.-20US024608

PATIENT
  Age: 57 Year
  Sex: Male

DRUGS (2)
  1. ELIGARD [Suspect]
     Active Substance: LEUPROLIDE ACETATE
     Indication: ADENOCARCINOMA METASTATIC
     Dosage: UNK
     Route: 065
  2. ENZALUTAMIDE [Suspect]
     Active Substance: ENZALUTAMIDE
     Indication: ADENOCARCINOMA METASTATIC
     Dosage: UNK
     Route: 065

REACTIONS (1)
  - Off label use [Unknown]
